FAERS Safety Report 18898512 (Version 1)
Quarter: 2021Q1

REPORT INFORMATION
  Report Type: Spontaneous
  Country: US (occurrence: US)
  Receive Date: 20210214
  Receipt Date: 20210214
  Transmission Date: 20210420
  Serious: No
  Sender: FDA-Public Use
  Company Number: None

PATIENT
  Age: 54 Year
  Sex: Female
  Weight: 74.25 kg

DRUGS (6)
  1. IMITREX [Concomitant]
     Active Substance: SUMATRIPTAN SUCCINATE
  2. EMGALITY [Suspect]
     Active Substance: GALCANEZUMAB-GNLM
     Indication: MIGRAINE
     Dates: start: 20201012, end: 20201212
  3. MAGNESIUM [Concomitant]
     Active Substance: MAGNESIUM
  4. TYLENOL [Concomitant]
     Active Substance: ACETAMINOPHEN
  5. ALEVE [Concomitant]
     Active Substance: NAPROXEN SODIUM
  6. EXCEDRIN [Concomitant]
     Active Substance: ACETAMINOPHEN\ASPIRIN\CAFFEINE

REACTIONS (5)
  - Drug ineffective [None]
  - Vomiting [None]
  - Constipation [None]
  - Intestinal obstruction [None]
  - Swelling [None]

NARRATIVE: CASE EVENT DATE: 20201212
